FAERS Safety Report 9882150 (Version 8)
Quarter: 2014Q2

REPORT INFORMATION
  Report Type: Spontaneous
  Country: US (occurrence: US)
  Receive Date: 20140207
  Receipt Date: 20140430
  Transmission Date: 20141212
  Serious: Yes (Hospitalization, Other)
  Sender: FDA-Public Use
  Company Number: US-JNJFOC-20140117835

PATIENT
  Age: 63 Year
  Sex: Male
  Weight: 70.1 kg

DRUGS (25)
  1. XARELTO [Suspect]
     Indication: ANTICOAGULANT THERAPY
     Dosage: 30 (UNITS NOT SPECIFIED)
     Route: 048
     Dates: start: 20131208, end: 20131223
  2. XARELTO [Suspect]
     Indication: ANTICOAGULANT THERAPY
     Route: 048
     Dates: start: 20140118
  3. XARELTO [Suspect]
     Indication: ANTICOAGULANT THERAPY
     Route: 048
     Dates: start: 20131230, end: 20140114
  4. XARELTO [Suspect]
     Indication: PULMONARY EMBOLISM
     Route: 048
     Dates: start: 20131230, end: 20140114
  5. XARELTO [Suspect]
     Indication: PULMONARY EMBOLISM
     Route: 048
     Dates: start: 20140118
  6. XARELTO [Suspect]
     Indication: PULMONARY EMBOLISM
     Dosage: 30 (UNITS NOT SPECIFIED)
     Route: 048
     Dates: start: 20131208, end: 20131223
  7. TEFLARO [Suspect]
     Indication: STAPHYLOCOCCAL BACTERAEMIA
     Route: 042
     Dates: start: 20131227, end: 20140107
  8. TEFLARO [Suspect]
     Indication: STAPHYLOCOCCAL BACTERAEMIA
     Route: 042
     Dates: start: 20140108, end: 20140119
  9. DILTIAZEM [Concomitant]
     Indication: ATRIAL FIBRILLATION
     Route: 048
     Dates: start: 20131227
  10. DIGOXIN [Concomitant]
     Indication: ATRIAL FIBRILLATION
     Route: 048
     Dates: start: 20131226
  11. DOCUSATE [Concomitant]
     Indication: DIVERTICULUM
     Route: 048
     Dates: start: 20060519
  12. LEVOTHYROXINE [Concomitant]
     Indication: HYPOTHYROIDISM
     Route: 048
     Dates: start: 20080618
  13. PREGABALIN [Concomitant]
     Indication: PAIN MANAGEMENT
     Route: 048
     Dates: start: 20061127
  14. ROSUVASTATIN [Concomitant]
     Indication: CARDIOVASCULAR EVENT PROPHYLAXIS
     Route: 048
     Dates: start: 20131205
  15. ACETAMINOPHEN [Concomitant]
     Indication: PAIN MANAGEMENT
     Dosage: AS NEEDED
     Route: 048
     Dates: start: 20051018
  16. LISINOPRIL [Concomitant]
     Indication: HYPERTENSION
     Route: 048
     Dates: start: 20051018
  17. ESOMEPRAZOLE [Concomitant]
     Indication: GASTRITIS
     Route: 048
     Dates: start: 20051018
  18. CYCLOBENZAPRINE [Concomitant]
     Indication: MUSCLE SPASMS
     Route: 048
     Dates: start: 20060523
  19. IRON IN COMBINATION WITH FOLIC ACID [Concomitant]
     Route: 065
     Dates: start: 20061103
  20. LACTULOSE [Concomitant]
     Indication: CONSTIPATION
     Dosage: 10G/15ML
     Route: 048
     Dates: start: 20100607
  21. SODIUM CHLORIDE [Concomitant]
     Indication: NASAL DRYNESS
     Dosage: AS NEEDED
     Route: 045
     Dates: start: 20140103, end: 20140107
  22. HEPARIN [Concomitant]
     Route: 042
     Dates: start: 20131230, end: 20131230
  23. HEPARIN [Concomitant]
     Route: 042
     Dates: start: 20131226, end: 20131226
  24. HEPARIN [Concomitant]
     Route: 042
     Dates: start: 20131227, end: 20131227
  25. HEPARIN [Concomitant]
     Route: 042
     Dates: start: 20131229, end: 20131229

REACTIONS (9)
  - Gastrointestinal tract adenoma [Unknown]
  - Haemoglobin decreased [Recovering/Resolving]
  - Sepsis [Unknown]
  - Endocarditis [Unknown]
  - Occult blood positive [Unknown]
  - Anaemia [Not Recovered/Not Resolved]
  - Gastrointestinal haemorrhage [Unknown]
  - Decreased appetite [Unknown]
  - Gastritis [Unknown]
